FAERS Safety Report 24234355 (Version 1)
Quarter: 2024Q3

REPORT INFORMATION
  Report Type: Spontaneous
  Country: US (occurrence: US)
  Receive Date: 20240821
  Receipt Date: 20240821
  Transmission Date: 20241017
  Serious: No
  Sender: SANDOZ
  Company Number: US-SANDOZ-SDZ2024US073198

PATIENT
  Sex: Female

DRUGS (1)
  1. ADALIMUMAB [Suspect]
     Active Substance: ADALIMUMAB
     Indication: Product used for unknown indication
     Dosage: UNK UNK, Q2W (40MG/0.4ML INJECTION)
     Route: 065

REACTIONS (3)
  - Incorrect dose administered by device [Unknown]
  - Circumstance or information capable of leading to device use error [Unknown]
  - Device failure [Unknown]
